FAERS Safety Report 16343094 (Version 1)
Quarter: 2019Q3

REPORT INFORMATION
  Report Type: Spontaneous
  Country: US (occurrence: US)
  Receive Date: 20190521
  Receipt Date: 20190521
  Transmission Date: 20191004
  Serious: Yes (Life-Threatening, Disabling)
  Sender: FDA-Public Use
  Company Number: None

PATIENT
  Age: 30 Year
  Sex: Male

DRUGS (1)
  1. CEPHALEXIN. [Suspect]
     Active Substance: CEPHALEXIN
     Indication: EYE INJURY
     Dosage: ?          QUANTITY:40 CAPSULE(S);?
     Route: 048
     Dates: start: 20100101, end: 20100206

REACTIONS (2)
  - Disturbance in attention [None]
  - Visual impairment [None]

NARRATIVE: CASE EVENT DATE: 20100106
